FAERS Safety Report 5530551-8 (Version None)
Quarter: 2007Q4

REPORT INFORMATION
  Report Type: 
  Country: None (occurrence: None)
  Receive Date: 20071119
  Receipt Date: 20070813
  Transmission Date: 20080405
  Serious: No
  Sender: FDA-Public Use
  Company Number: TPA2007A01698

PATIENT

DRUGS (1)
  1. ROZEREM [Suspect]

REACTIONS (2)
  - INITIAL INSOMNIA [None]
  - PSYCHOMOTOR HYPERACTIVITY [None]
